FAERS Safety Report 22056107 (Version 1)
Quarter: 2023Q1

REPORT INFORMATION
  Report Type: Spontaneous
  Country: TW (occurrence: TW)
  Receive Date: 20230302
  Receipt Date: 20230302
  Transmission Date: 20230417
  Serious: Yes (Other)
  Sender: FDA-Public Use
  Company Number: TW-BIOCRYST PHARMACEUTICALS, INC.-2023BCR00172

PATIENT
  Age: 13 Year
  Sex: Female
  Weight: 40 kg

DRUGS (2)
  1. RAPIACTA [Suspect]
     Active Substance: PERAMIVIR
     Indication: Influenza
     Dosage: 480 MG, QD
     Route: 042
     Dates: start: 20190918, end: 20190918
  2. DEXTROSE\SODIUM CHLORIDE [Concomitant]
     Active Substance: DEXTROSE\SODIUM CHLORIDE
     Dosage: 500 ML, QD
     Route: 042
     Dates: start: 20190918, end: 20190923

REACTIONS (1)
  - Phlebitis [Recovered/Resolved]

NARRATIVE: CASE EVENT DATE: 20190921
